FAERS Safety Report 18928215 (Version 1)
Quarter: 2021Q1

REPORT INFORMATION
  Report Type: Spontaneous
  Country: CA (occurrence: CA)
  Receive Date: 20210223
  Receipt Date: 20210223
  Transmission Date: 20210420
  Serious: Yes (Other)
  Sender: FDA-Public Use
  Company Number: CA-B.I. PHARMACEUTICALS,INC./RIDGEFIELD-2021-BI-082763

PATIENT
  Age: 42 Year
  Sex: Female

DRUGS (8)
  1. MIRAPEX [Suspect]
     Active Substance: PRAMIPEXOLE DIHYDROCHLORIDE
     Dosage: DOSE INCREASED TO 0.25 MG IE ONE 0.25 MG TABLET ONCE PER DAY
     Route: 065
     Dates: start: 20090930, end: 20120721
  2. MIRAPEX [Suspect]
     Active Substance: PRAMIPEXOLE DIHYDROCHLORIDE
     Dosage: DOSE WAS INCREASED FROM 0.25MG TO 0.50 MG (ONE 0.25 MG TABLET OR TWO 0.25 MG TABLETS IF NEEDED)
     Route: 065
     Dates: start: 20120811, end: 20130717
  3. MIRAPEX [Suspect]
     Active Substance: PRAMIPEXOLE DIHYDROCHLORIDE
     Indication: RESTLESS LEGS SYNDROME
     Dosage: 1/2 TABLET OF 0.25 MG ONCE PER DAY
     Route: 065
     Dates: start: 20090819, end: 20090918
  4. MIRAPEX [Suspect]
     Active Substance: PRAMIPEXOLE DIHYDROCHLORIDE
     Dosage: DOSE INCREASED FROM 0.25MG TO 0.50 MG OR 0.75 MG IE ONE 0.25 MG TABLET ONCE A DAY TO TWO OR THREE 0.
     Route: 065
     Dates: start: 20130808, end: 20150720
  5. MIRAPEX [Suspect]
     Active Substance: PRAMIPEXOLE DIHYDROCHLORIDE
     Dosage: DOSE REVISED TO 2 TABLETS OF 0.25 MG ONCE A DAY FOR A WEEK
     Route: 065
     Dates: start: 20200901
  6. MIRAPEX [Suspect]
     Active Substance: PRAMIPEXOLE DIHYDROCHLORIDE
     Dosage: THEN 1 TABLET OF 0.25 MG ONCE A DAY FOR A WEEK
     Route: 065
     Dates: end: 202009
  7. MIRAPEX [Suspect]
     Active Substance: PRAMIPEXOLE DIHYDROCHLORIDE
     Dosage: PRESCRIBED DOSE REMAINED THE SAME AT 0.75MG IE ONE AND 1/2 TABLETS OF 0.50 MG ONCE A DAY
     Route: 065
     Dates: start: 20180924, end: 20200807
  8. MIRAPEX [Suspect]
     Active Substance: PRAMIPEXOLE DIHYDROCHLORIDE
     Dosage: DOSE INCREASED TO 0.75 MG IE THREE 0.25MG TABLETS THREE TIMES A DAY
     Route: 065
     Dates: start: 20150731, end: 20180923

REACTIONS (3)
  - Sleep disorder [Unknown]
  - Drug dependence [Unknown]
  - Gambling disorder [Unknown]

NARRATIVE: CASE EVENT DATE: 2018
